FAERS Safety Report 10589829 (Version 1)
Quarter: 2014Q4

REPORT INFORMATION
  Report Type: Spontaneous
  Country: US (occurrence: None)
  Receive Date: 20141117
  Receipt Date: 20141117
  Transmission Date: 20150529
  Serious: Yes (Hospitalization, Other)
  Sender: FDA-Public Use
  Company Number: None

PATIENT
  Age: 53 Year
  Sex: Female
  Weight: 56.7 kg

DRUGS (2)
  1. ZOLADEX [Suspect]
     Active Substance: GOSERELIN ACETATE
     Indication: HORMONE REPLACEMENT THERAPY
     Dosage: INJECTION MONTHLY GIVEN INTO/UNDER THE SKIN
     Dates: start: 20140520, end: 20140722
  2. ZOLADEX [Suspect]
     Active Substance: GOSERELIN ACETATE
     Dosage: INJECTION MONTHLY GIVEN INTO/UNDER THE SKIN
     Dates: start: 20140520, end: 20140722

REACTIONS (7)
  - Dyspnoea [None]
  - Contusion [None]
  - Abdominal distension [None]
  - Abasia [None]
  - Injection site mass [None]
  - Abdominal pain [None]
  - Injection site haematoma [None]

NARRATIVE: CASE EVENT DATE: 20140722
